FAERS Safety Report 15097125 (Version 1)
Quarter: 2018Q3

REPORT INFORMATION
  Report Type: Spontaneous
  Country: FR (occurrence: FR)
  Receive Date: 20180702
  Receipt Date: 20180702
  Transmission Date: 20181010
  Serious: Yes (Hospitalization)
  Sender: FDA-Public Use
  Company Number: FR-GLAXOSMITHKLINE-FR2018112623

PATIENT
  Age: 53 Year
  Sex: Male
  Weight: 92 kg

DRUGS (5)
  1. BACTRIM [Suspect]
     Active Substance: SULFAMETHOXAZOLE\TRIMETHOPRIM
     Indication: OPPORTUNISTIC INFECTION PROPHYLAXIS
     Dosage: 3 DF, WE
     Route: 048
     Dates: start: 20180530, end: 20180609
  2. ALLOPURINOL. [Suspect]
     Active Substance: ALLOPURINOL
     Indication: PROPHYLAXIS
     Dosage: 300 MG, QD
     Route: 048
     Dates: start: 20180529, end: 20180609
  3. ZELITREX [Suspect]
     Active Substance: VALACYCLOVIR HYDROCHLORIDE
     Indication: OPPORTUNISTIC INFECTION PROPHYLAXIS
     Dosage: 1000 MG, QD
     Route: 048
     Dates: start: 20180529, end: 20180609
  4. MABTHERA [Suspect]
     Active Substance: RITUXIMAB
     Indication: LYMPHOMA
     Dosage: CYCLICAL
     Route: 041
     Dates: start: 20180531, end: 20180531
  5. BENDAMUSTINE HYDROCHLORIDE. [Suspect]
     Active Substance: BENDAMUSTINE HYDROCHLORIDE
     Indication: LYMPHOMA
     Dosage: CYCLICAL
     Route: 041
     Dates: start: 20180531, end: 20180601

REACTIONS (2)
  - Rash macular [Recovered/Resolved]
  - Pyrexia [Recovered/Resolved]

NARRATIVE: CASE EVENT DATE: 20180608
